FAERS Safety Report 6274000-3 (Version None)
Quarter: 2009Q3

REPORT INFORMATION
  Report Type: 
  Country: None (occurrence: None)
  Receive Date: 20090716
  Receipt Date: 20090708
  Transmission Date: 20100115
  Serious: Yes (Hospitalization)
  Sender: FDA-Public Use
  Company Number: WAES 0907FRA00023

PATIENT
  Age: 44 Year
  Sex: Female

DRUGS (4)
  1. CAP VORINOSTAT [Suspect]
     Indication: NON-SMALL CELL LUNG CANCER
     Dosage: 400 MG/DAILY PO
     Route: 048
     Dates: start: 20090624, end: 20090703
  2. GEMCITABINE [Suspect]
     Indication: NON-SMALL CELL LUNG CANCER
     Dosage: 1250 MG/M[2]/DAILY IV
     Route: 042
     Dates: start: 20090626, end: 20090626
  3. GEMCITABINE [Suspect]
     Indication: NON-SMALL CELL LUNG CANCER
     Dosage: 1250 MG/M[2]/DAILY IV
     Route: 042
     Dates: start: 20090703, end: 20090703
  4. CISPLATIN [Suspect]
     Indication: NON-SMALL CELL LUNG CANCER
     Dosage: 75 MG/M [2] /DAILY IV
     Route: 042
     Dates: start: 20090626, end: 20090626

REACTIONS (1)
  - CEREBROVASCULAR ACCIDENT [None]
